FAERS Safety Report 13849818 (Version 1)
Quarter: 2017Q3

REPORT INFORMATION
  Report Type: Spontaneous
  Country: TW (occurrence: TW)
  Receive Date: 20170809
  Receipt Date: 20170809
  Transmission Date: 20171127
  Serious: Yes (Life-Threatening, Hospitalization, Other)
  Sender: FDA-Public Use
  Company Number: TW-ORION CORPORATION ORION PHARMA-TREX2017-2349

PATIENT
  Age: 74 Year
  Sex: Female

DRUGS (1)
  1. METHOTREXATE. [Suspect]
     Active Substance: METHOTREXATE
     Indication: PSORIASIS
     Dosage: STARTING DOSE OF 10 MG TO A MAXIMAL DOSE OF 10 MG PER WEEK.
     Route: 065

REACTIONS (4)
  - Drug clearance decreased [Unknown]
  - Hypoalbuminaemia [Unknown]
  - Epidermal necrosis [Recovered/Resolved]
  - Toxicity to various agents [Unknown]
